FAERS Safety Report 8860356 (Version 1)
Quarter: 2012Q4

REPORT INFORMATION
  Report Type: 
  Country: FR (occurrence: FR)
  Receive Date: 20121025
  Receipt Date: 20121025
  Transmission Date: 20130627
  Serious: Yes (Hospitalization)
  Sender: FDA-Public Use
  Company Number: FR-VERTEX PHARMACEUTICAL INC.-000000000000000971

PATIENT
  Age: 6 None
  Sex: Male

DRUGS (3)
  1. INCIVO [Suspect]
     Indication: HEPATITIS C
     Dosage: Dosage Form: Tablet, telaprevir withdrawal after 10 weeks of treatment
     Dates: start: 201203, end: 20120528
  2. PEGYLATED INTERFERON [Concomitant]
     Indication: HEPATITIS C
  3. COPEGUS [Concomitant]
     Indication: HEPATITIS C
     Dates: end: 20120528

REACTIONS (5)
  - Sepsis [Unknown]
  - Vasculitis [Unknown]
  - Toxic skin eruption [Recovered/Resolved]
  - Anaemia [Recovered/Resolved]
  - Drug reaction with eosinophilia and systemic symptoms [Recovered/Resolved]
